FAERS Safety Report 25185927 (Version 1)
Quarter: 2025Q2

REPORT INFORMATION
  Report Type: Spontaneous
  Country: US (occurrence: US)
  Receive Date: 20250410
  Receipt Date: 20250410
  Transmission Date: 20250716
  Serious: No
  Sender: VERTEX
  Company Number: US-VERTEX PHARMACEUTICALS-2025-005219

PATIENT
  Age: 72 Year
  Sex: Male

DRUGS (2)
  1. JOURNAVX [Suspect]
     Active Substance: SUZETRIGINE
     Indication: Neuralgia
     Route: 048
     Dates: start: 20250329
  2. JOURNAVX [Suspect]
     Active Substance: SUZETRIGINE
     Indication: Neuropathy peripheral

REACTIONS (4)
  - Lip swelling [Unknown]
  - Abnormal dreams [Unknown]
  - Erythema [Unknown]
  - Off label use [Unknown]

NARRATIVE: CASE EVENT DATE: 20250329
